FAERS Safety Report 5846880-4 (Version None)
Quarter: 2008Q3

REPORT INFORMATION
  Report Type: 
  Country: None (occurrence: None)
  Receive Date: 20080815
  Receipt Date: 20080807
  Transmission Date: 20090109
  Serious: Yes (Other)
  Sender: FDA-Public Use
  Company Number: JP-PFIZER INC-2008054176

PATIENT
  Sex: Female

DRUGS (8)
  1. SOLANAX [Suspect]
     Route: 048
  2. DESYREL [Suspect]
     Route: 048
  3. LUDIOMIL [Suspect]
     Route: 048
  4. COLONEL [Suspect]
     Route: 048
  5. TOLEDOMIN [Suspect]
     Route: 048
  6. ALL OTHER THERAPEUTIC PRODUCTS [Concomitant]
  7. EVAMYL [Concomitant]
     Route: 048
  8. ARTZ [Concomitant]
     Indication: OSTEOARTHRITIS
     Dosage: DAILY DOSE:25MG
     Dates: start: 20080313, end: 20080626

REACTIONS (4)
  - HYPOKALAEMIA [None]
  - HYPOPHAGIA [None]
  - PARKINSONISM [None]
  - URINARY TRACT OBSTRUCTION [None]
